FAERS Safety Report 9259816 (Version 1)
Quarter: 2013Q2

REPORT INFORMATION
  Report Type: Spontaneous
  Country: US (occurrence: US)
  Receive Date: 20130429
  Receipt Date: 20130429
  Transmission Date: 20140414
  Serious: No
  Sender: FDA-Public Use
  Company Number: US-BIOGENIDEC-2013BI038059

PATIENT
  Age: 48 Year
  Sex: Female

DRUGS (2)
  1. TYSABRI [Suspect]
     Indication: MULTIPLE SCLEROSIS
     Route: 042
     Dates: start: 20121108, end: 20130321
  2. SOLUMEDROL [Concomitant]
     Indication: PREMEDICATION

REACTIONS (2)
  - Respiratory distress [Recovered/Resolved]
  - Drug intolerance [Recovered/Resolved]
